FAERS Safety Report 25833414 (Version 1)
Quarter: 2025Q3

REPORT INFORMATION
  Report Type: Spontaneous
  Country: GB (occurrence: GB)
  Receive Date: 20250922
  Receipt Date: 20250922
  Transmission Date: 20251021
  Serious: Yes (Other)
  Sender: JAZZ
  Company Number: GB-JAZZ PHARMACEUTICALS-2025-GB-022010

PATIENT
  Age: 67 Year
  Sex: Male

DRUGS (1)
  1. VYXEOS [Suspect]
     Active Substance: CYTARABINE\DAUNORUBICIN
     Indication: Product used for unknown indication

REACTIONS (6)
  - Neutropenic sepsis [Unknown]
  - Uveitis [Unknown]
  - Lower respiratory tract infection [Unknown]
  - Rash [Unknown]
  - Skin fissures [Unknown]
  - Skin infection [Unknown]
